FAERS Safety Report 11316675 (Version 1)
Quarter: 2015Q3

REPORT INFORMATION
  Report Type: Report from Study
  Country: US (occurrence: US)
  Receive Date: 20150728
  Receipt Date: 20150728
  Transmission Date: 20151125
  Serious: Yes (Hospitalization, Other)
  Sender: FDA-Public Use
  Company Number: PHEH2015US004991

PATIENT
  Sex: Male
  Weight: 79.6 kg

DRUGS (5)
  1. KEPPRA [Concomitant]
     Active Substance: LEVETIRACETAM
     Dosage: 2250 MG, BID (ODD DAYS)
     Route: 065
  2. ELAVIL [Concomitant]
     Active Substance: AMITRIPTYLINE HYDROCHLORIDE
     Indication: COMPLEX PARTIAL SEIZURES
     Dosage: 10 MG, QHS
     Route: 065
  3. KEPPRA [Concomitant]
     Active Substance: LEVETIRACETAM
     Indication: COMPLEX PARTIAL SEIZURES
     Dosage: 1500 MG, BID (ODD DAYS)
     Route: 065
  4. KEPPRA [Concomitant]
     Active Substance: LEVETIRACETAM
     Dosage: 1500 MG, BID (EVEN DAYS)
     Route: 065
  5. TRILEPTAL [Suspect]
     Active Substance: OXCARBAZEPINE
     Indication: COMPLEX PARTIAL SEIZURES
     Dosage: 600 MG, BID
     Route: 048

REACTIONS (2)
  - Seizure [Unknown]
  - Dysuria [Unknown]
